FAERS Safety Report 4862665-X (Version None)
Quarter: 2005Q4

REPORT INFORMATION
  Report Type: 
  Country: None (occurrence: None)
  Receive Date: 20051221
  Receipt Date: 20051013
  Transmission Date: 20060501
  Serious: Yes (Other)
  Sender: FDA-Public Use
  Company Number: JP-MERCK-0510USA07218

PATIENT
  Age: 11 Month
  Sex: Male
  Weight: 6 kg

DRUGS (7)
  1. VASOTEC [Suspect]
     Indication: CARDIAC DISORDER
     Route: 048
     Dates: start: 20051009, end: 20051010
  2. TARGOCID [Concomitant]
     Route: 041
  3. MINOCYCLINE HCL [Concomitant]
     Indication: ENDOCARDITIS
     Route: 042
     Dates: start: 20050901, end: 20051105
  4. FRANDOL [Concomitant]
     Indication: CARDIAC FAILURE
     Route: 061
     Dates: start: 20051009
  5. DOBUTREX [Concomitant]
     Indication: CARDIAC FAILURE
     Route: 042
     Dates: start: 20051009, end: 20051028
  6. LASIX [Concomitant]
     Route: 048
     Dates: start: 20051009
  7. ALDACTONE [Concomitant]
     Route: 048
     Dates: start: 20051009

REACTIONS (2)
  - BLOOD PRESSURE DECREASED [None]
  - RENAL FAILURE ACUTE [None]
